APPROVED DRUG PRODUCT: VIVELLE-DOT
Active Ingredient: ESTRADIOL
Strength: 0.025MG/24HR
Dosage Form/Route: SYSTEM;TRANSDERMAL
Application: N020538 | Product #009 | TE Code: AB1
Applicant: SANDOZ INC
Approved: May 3, 2002 | RLD: Yes | RS: No | Type: RX